FAERS Safety Report 21927270 (Version 2)
Quarter: 2023Q1

REPORT INFORMATION
  Report Type: Spontaneous
  Country: US (occurrence: US)
  Receive Date: 20230130
  Receipt Date: 20230222
  Transmission Date: 20230418
  Serious: Yes (Hospitalization, Other)
  Sender: FDA-Public Use
  Company Number: US-PFIZER INC-PV202300015928

PATIENT
  Age: 77 Year
  Sex: Female
  Weight: 98.413 kg

DRUGS (1)
  1. DOFETILIDE [Suspect]
     Active Substance: DOFETILIDE
     Indication: Atrial fibrillation
     Dosage: 20 MG, DAILY

REACTIONS (4)
  - Feeling abnormal [Recovered/Resolved]
  - Gastric disorder [Recovered/Resolved]
  - Eating disorder [Unknown]
  - Nausea [Unknown]
